FAERS Safety Report 26121469 (Version 1)
Quarter: 2025Q4

REPORT INFORMATION
  Report Type: Spontaneous
  Country: EU (occurrence: EU)
  Receive Date: 20251204
  Receipt Date: 20251204
  Transmission Date: 20260117
  Serious: Yes (Life-Threatening, Hospitalization, Other)
  Sender: TEVA
  Company Number: None

PATIENT
  Age: 70 Year
  Sex: Female

DRUGS (12)
  1. QUETIAPINE [Suspect]
     Active Substance: QUETIAPINE
     Indication: Bipolar I disorder
     Dosage: 18/19 25 MG TABLETS --} 475 MG
     Route: 048
  2. PENTASA [Concomitant]
     Active Substance: MESALAMINE
     Indication: Crohn^s disease
     Route: 048
  3. HUMALOG [Suspect]
     Active Substance: INSULIN LISPRO
     Indication: Type 2 diabetes mellitus
     Dosage: ND
     Route: 058
  4. NALOXONE HYDROCHLORIDE\OXYCODONE HYDROCHLORIDE [Concomitant]
     Active Substance: NALOXONE HYDROCHLORIDE\OXYCODONE HYDROCHLORIDE
     Indication: Fibromyalgia
     Dosage: 10/5 MG TWICE DAILY
     Route: 048
  5. TREMFYA [Concomitant]
     Active Substance: GUSELKUMAB
     Indication: Psoriatic arthropathy
     Dosage: 100MG/EVERY 8 WEEKS
     Route: 058
     Dates: start: 20231107, end: 20251025
  6. CHOLECALCIFEROL [Concomitant]
     Active Substance: CHOLECALCIFEROL
     Indication: Vitamin D deficiency
     Route: 048
  7. RISEDRONATO SODICO [Concomitant]
     Indication: Bipolar I disorder
     Route: 048
  8. OMEPRAZOLE [Concomitant]
     Active Substance: OMEPRAZOLE
     Indication: Prophylaxis against gastrointestinal ulcer
     Route: 048
  9. LYRICA [Concomitant]
     Active Substance: PREGABALIN
     Indication: Fibromyalgia
     Route: 048
  10. TOUJEO [Concomitant]
     Active Substance: INSULIN GLARGINE
     Indication: Type 2 diabetes mellitus
     Dosage: ND
     Route: 058
  11. DULOXETINE [Concomitant]
     Active Substance: DULOXETINE
     Indication: Bipolar I disorder
     Route: 048
  12. AMLODIPINE [Concomitant]
     Active Substance: AMLODIPINE BESYLATE
     Indication: Hypertension
     Route: 048

REACTIONS (2)
  - Suicide attempt [Recovered/Resolved with Sequelae]
  - Drug abuse [Recovered/Resolved with Sequelae]

NARRATIVE: CASE EVENT DATE: 20250411
